FAERS Safety Report 14295362 (Version 10)
Quarter: 2021Q2

REPORT INFORMATION
  Report Type: Spontaneous
  Country: US (occurrence: US)
  Receive Date: 20171218
  Receipt Date: 20210401
  Transmission Date: 20210716
  Serious: Yes (Other)
  Sender: FDA-Public Use
  Company Number: US-PFIZER INC-2017534842

PATIENT
  Age: 49 Year
  Sex: Female
  Weight: 127 kg

DRUGS (12)
  1. LEXAPRO [Concomitant]
     Active Substance: ESCITALOPRAM OXALATE
     Indication: MAJOR DEPRESSION
     Dosage: 30 MG, DAILY
     Route: 048
  2. XELJANZ [Suspect]
     Active Substance: TOFACITINIB CITRATE
     Dosage: 5 MG, DAILY
  3. HIZENTRA [Concomitant]
     Active Substance: HUMAN IMMUNOGLOBULIN G
     Indication: HYPERGLYCAEMIA
  4. XELJANZ [Suspect]
     Active Substance: TOFACITINIB CITRATE
     Indication: RHEUMATOID ARTHRITIS
     Dosage: 5 MG, 1X/DAY
     Dates: start: 20170929
  5. HIZENTRA [Concomitant]
     Active Substance: HUMAN IMMUNOGLOBULIN G
     Indication: ANAEMIA
     Dosage: 12 G, WEEKLY
     Route: 058
  6. XANAX [Concomitant]
     Active Substance: ALPRAZOLAM
     Indication: ANXIETY
     Dosage: 3 MG, AS NEEDED
     Route: 048
     Dates: start: 202005
  7. XELJANZ [Suspect]
     Active Substance: TOFACITINIB CITRATE
     Dosage: 5 MG, 2X/DAY
     Route: 048
     Dates: start: 2018
  8. BUSPAR [Concomitant]
     Active Substance: BUSPIRONE HYDROCHLORIDE
     Indication: ANXIETY
     Dosage: 15 MG, 2X/DAY
     Route: 048
     Dates: start: 2016
  9. METHOTREXATE. [Concomitant]
     Active Substance: METHOTREXATE
     Indication: RHEUMATOID ARTHRITIS
     Dosage: UNK
  10. METHOTREXATE. [Concomitant]
     Active Substance: METHOTREXATE
     Indication: MUSCULOSKELETAL STIFFNESS
  11. XELJANZ [Suspect]
     Active Substance: TOFACITINIB CITRATE
     Dosage: 5 MG, 2X/DAY
     Route: 048
     Dates: start: 2017
  12. METOPROLOL. [Concomitant]
     Active Substance: METOPROLOL
     Indication: HYPERTENSION
     Dosage: 50 MG, 2X/DAY

REACTIONS (17)
  - Renal failure [Unknown]
  - Sinusitis [Recovering/Resolving]
  - Ear infection [Recovering/Resolving]
  - Sensitivity to weather change [Unknown]
  - Hepatic failure [Unknown]
  - Off label use [Unknown]
  - Respiratory failure [Unknown]
  - Haematoma [Unknown]
  - Peripheral swelling [Unknown]
  - Feeling abnormal [Unknown]
  - Fear of death [Unknown]
  - Nasopharyngitis [Unknown]
  - COVID-19 pneumonia [Unknown]
  - Vomiting projectile [Unknown]
  - Immunodeficiency [Unknown]
  - Peripheral vascular disorder [Unknown]
  - Illness [Unknown]

NARRATIVE: CASE EVENT DATE: 20170929
